FAERS Safety Report 16248511 (Version 1)
Quarter: 2019Q2

REPORT INFORMATION
  Report Type: Spontaneous
  Country: US (occurrence: US)
  Receive Date: 20190429
  Receipt Date: 20190429
  Transmission Date: 20190711
  Serious: No
  Sender: FDA-Public Use
  Company Number: US-TEVA-2019-US-1042067

PATIENT
  Age: 42 Year
  Sex: Female
  Weight: 86 kg

DRUGS (12)
  1. VITAMIN B2 [Concomitant]
     Active Substance: RIBOFLAVIN
  2. FISH OIL [Concomitant]
     Active Substance: FISH OIL
  3. SUMATRIPTAN. [Concomitant]
     Active Substance: SUMATRIPTAN
     Indication: MIGRAINE
  4. NAPROXEN. [Concomitant]
     Active Substance: NAPROXEN
  5. AJOVY [Suspect]
     Active Substance: FREMANEZUMAB-VFRM
     Indication: MIGRAINE
     Dates: start: 201903
  6. VITAMIN D NOS [Concomitant]
     Active Substance: VITAMIN D NOS
  7. MIRENA [Concomitant]
     Active Substance: LEVONORGESTREL
  8. COMPAZINE [Concomitant]
     Active Substance: PROCHLORPERAZINE MALEATE
  9. BENADRYL [Concomitant]
     Active Substance: DIPHENHYDRAMINE HYDROCHLORIDE
  10. COQ10 [Concomitant]
     Active Substance: UBIDECARENONE
  11. RIZATRIPTAN. [Interacting]
     Active Substance: RIZATRIPTAN
     Indication: MIGRAINE
  12. MAGNESIUM [Concomitant]
     Active Substance: MAGNESIUM

REACTIONS (3)
  - Reflux gastritis [Unknown]
  - Abdominal discomfort [Unknown]
  - Inhibitory drug interaction [Unknown]
